FAERS Safety Report 7435672-0 (Version None)
Quarter: 2011Q2

REPORT INFORMATION
  Report Type: 
  Country: None (occurrence: None)
  Receive Date: 20110425
  Receipt Date: 20110420
  Transmission Date: 20111010
  Serious: Yes (Life-Threatening)
  Sender: FDA-Public Use
  Company Number: PHHY2011GB33091

PATIENT
  Age: 30 Year
  Sex: Female

DRUGS (7)
  1. NITRAZEPAM [Suspect]
  2. NEUROFEN [Suspect]
  3. ISOTRETINOIN [Suspect]
     Dosage: }9000MG
     Route: 048
  4. ZOPICLONE [Suspect]
     Dosage: 7.5 MG, UNK
     Route: 048
  5. CITALOPRAM [Suspect]
  6. TRAZODONE HCL [Suspect]
     Dosage: 150 MG, UNK
     Route: 048
  7. ISOTRETINOIN [Suspect]
     Indication: ACNE
     Dosage: 20 MG, QD
     Route: 048

REACTIONS (2)
  - MULTIPLE DRUG OVERDOSE INTENTIONAL [None]
  - SUICIDE ATTEMPT [None]
